FAERS Safety Report 5764174-2 (Version None)
Quarter: 2008Q2

REPORT INFORMATION
  Report Type: 
  Country: None (occurrence: None)
  Receive Date: 20080610
  Receipt Date: 20080526
  Transmission Date: 20081010
  Serious: Yes (Death)
  Sender: FDA-Public Use
  Company Number: ES-GENENTECH-259655

PATIENT
  Sex: Male
  Weight: 52 kg

DRUGS (6)
  1. BEVACIZUMAB [Suspect]
     Indication: RECTAL CANCER
     Dosage: 400 MG, Q21D
     Route: 042
     Dates: start: 20080313, end: 20080414
  2. CAPECITABINE [Suspect]
     Indication: RECTAL CANCER
     Dosage: 3000 MG, D1-14/Q3W
     Route: 048
     Dates: start: 20080313, end: 20080414
  3. OXALIPLATIN [Suspect]
     Indication: RECTAL CANCER
     Dosage: 200 MG, Q21D
     Route: 042
     Dates: start: 20080313, end: 20080414
  4. REPAGLINIDE [Concomitant]
     Indication: DRUG USE FOR UNKNOWN INDICATION
     Dosage: UNK, UNK
     Dates: end: 20080407
  5. METFORMINA [Concomitant]
     Indication: DRUG USE FOR UNKNOWN INDICATION
     Dosage: UNK, UNK
     Dates: end: 20080407
  6. INSULIN [Concomitant]
     Indication: DRUG USE FOR UNKNOWN INDICATION

REACTIONS (3)
  - DEHYDRATION [None]
  - DIABETIC KETOACIDOSIS [None]
  - NEUTROPENIA [None]
